FAERS Safety Report 9275958 (Version 1)
Quarter: 2013Q2

REPORT INFORMATION
  Report Type: Spontaneous
  Country: US (occurrence: US)
  Receive Date: 20130507
  Receipt Date: 20130507
  Transmission Date: 20140414
  Serious: Yes (Hospitalization, Congenital Anomaly, Other)
  Sender: FDA-Public Use
  Company Number: US-JNJFOC-20130502935

PATIENT
  Sex: Female

DRUGS (3)
  1. TOPAMAX [Suspect]
     Indication: FOETAL EXPOSURE DURING PREGNANCY
     Route: 064
  2. AMITRIPTYLINE [Suspect]
     Indication: FOETAL EXPOSURE DURING PREGNANCY
     Route: 064
  3. INDERAL [Suspect]
     Indication: FOETAL EXPOSURE DURING PREGNANCY
     Route: 064

REACTIONS (11)
  - Congenital central nervous system anomaly [Unknown]
  - Umbilical hernia [Unknown]
  - Failure to thrive [Unknown]
  - Foetal growth restriction [Unknown]
  - Premature baby [Not Recovered/Not Resolved]
  - Hyperbilirubinaemia [Unknown]
  - Hypokalaemia [Unknown]
  - Inguinal hernia [Unknown]
  - Hiatus hernia [Unknown]
  - Gastrooesophageal reflux disease [Unknown]
  - Respiratory distress [Unknown]
